FAERS Safety Report 14583625 (Version 1)
Quarter: 2018Q1

REPORT INFORMATION
  Report Type: Report from Study
  Country: IT (occurrence: IT)
  Receive Date: 20180228
  Receipt Date: 20180228
  Transmission Date: 20180509
  Serious: Yes (Hospitalization, Other)
  Sender: FDA-Public Use
  Company Number: IT-PFIZER INC-2018084214

PATIENT
  Age: 15 Year
  Sex: Female

DRUGS (2)
  1. IBUPROFEN. [Suspect]
     Active Substance: IBUPROFEN
     Indication: PYREXIA
     Dosage: 752 MG, MAXIMUM DOSE
  2. CELECOXIB. [Suspect]
     Active Substance: CELECOXIB
     Indication: DRUG PROVOCATION TEST
     Dosage: 4.7 MG/KG, UNK

REACTIONS (4)
  - Drug hypersensitivity [Unknown]
  - Urticaria chronic [Unknown]
  - Lip swelling [Unknown]
  - Swelling face [Unknown]
